FAERS Safety Report 12242793 (Version 2)
Quarter: 2016Q2

REPORT INFORMATION
  Report Type: Spontaneous
  Country: US (occurrence: US)
  Receive Date: 20160406
  Receipt Date: 20160411
  Transmission Date: 20160815
  Serious: Yes (Other)
  Sender: FDA-Public Use
  Company Number: US-TEVA-648551USA

PATIENT
  Age: 51 Year
  Sex: Female

DRUGS (2)
  1. ZECUITY [Suspect]
     Active Substance: SUMATRIPTAN SUCCINATE
     Route: 062
     Dates: start: 201603, end: 201603
  2. ZECUITY [Suspect]
     Active Substance: SUMATRIPTAN SUCCINATE
     Route: 062
     Dates: start: 20160330, end: 20160330

REACTIONS (1)
  - Application site burn [Unknown]

NARRATIVE: CASE EVENT DATE: 201603
